FAERS Safety Report 5480396-2 (Version None)
Quarter: 2007Q4

REPORT INFORMATION
  Report Type: 
  Country: None (occurrence: None)
  Receive Date: 20071009
  Receipt Date: 20071002
  Transmission Date: 20080405
  Serious: Yes (Other)
  Sender: FDA-Public Use
  Company Number: JP-MERCK-0710USA00582

PATIENT
  Age: 74 Year
  Sex: Male
  Weight: 60 kg

DRUGS (7)
  1. FOSAMAX [Suspect]
     Indication: OSTEOPOROSIS PROPHYLAXIS
     Route: 048
     Dates: start: 20070901, end: 20070908
  2. ALLELOCK [Concomitant]
     Indication: PRURITUS
     Route: 048
     Dates: start: 20070326
  3. BAKTAR [Suspect]
     Indication: ANTIFUNGAL PROPHYLAXIS
     Route: 048
     Dates: start: 20070407, end: 20070913
  4. PREDONINE [Concomitant]
     Indication: PEMPHIGUS
     Route: 048
     Dates: start: 20070407
  5. LAFUTIDINE [Concomitant]
     Indication: PROPHYLAXIS AGAINST GASTROINTESTINAL ULCER
     Route: 048
     Dates: start: 20070407
  6. [THERAPY UNSPECIFIED] [Concomitant]
     Indication: OEDEMA PERIPHERAL
     Route: 048
     Dates: start: 20070409
  7. GLAKAY [Concomitant]
     Indication: OSTEOPOROSIS PROPHYLAXIS
     Route: 048
     Dates: start: 20070421

REACTIONS (2)
  - LIVER DISORDER [None]
  - RASH ERYTHEMATOUS [None]
